FAERS Safety Report 20056094 (Version 16)
Quarter: 2023Q2

REPORT INFORMATION
  Report Type: Report from Study
  Country: US (occurrence: US)
  Receive Date: 20211111
  Receipt Date: 20230515
  Transmission Date: 20230722
  Serious: Yes (Hospitalization, Other)
  Sender: FDA-Public Use
  Company Number: US-NOVARTISTESTPH-NVSC2021US257357

PATIENT
  Sex: Female

DRUGS (2)
  1. KESIMPTA [Suspect]
     Active Substance: OFATUMUMAB
     Indication: Multiple sclerosis
     Dosage: 20 MG, QMO
     Route: 058
     Dates: start: 20211014
  2. KESIMPTA [Suspect]
     Active Substance: OFATUMUMAB
     Dosage: UNK
     Route: 058
     Dates: start: 20230201

REACTIONS (29)
  - Multiple sclerosis relapse [Unknown]
  - Multiple sclerosis [Unknown]
  - Pruritus [Recovered/Resolved]
  - Cough [Unknown]
  - Alopecia [Not Recovered/Not Resolved]
  - Pain [Unknown]
  - Memory impairment [Unknown]
  - Pain of skin [Unknown]
  - Pain in extremity [Unknown]
  - Hypoaesthesia [Unknown]
  - Heart rate abnormal [Unknown]
  - Optic nerve disorder [Not Recovered/Not Resolved]
  - Skin lesion [Recovered/Resolved]
  - Conjunctivitis [Unknown]
  - Labyrinthitis [Unknown]
  - Peripheral swelling [Recovering/Resolving]
  - Insomnia [Unknown]
  - Urticaria [Recovered/Resolved]
  - Rash [Recovered/Resolved]
  - Hair texture abnormal [Unknown]
  - Eye pain [Not Recovered/Not Resolved]
  - Vitreous floaters [Not Recovered/Not Resolved]
  - Spinal pain [Unknown]
  - Conjunctivitis allergic [Unknown]
  - Skin tightness [Recovering/Resolving]
  - Product quality issue [Unknown]
  - Product dose omission issue [Unknown]
  - Drug effect less than expected [Unknown]
  - Inappropriate schedule of product administration [Unknown]
